FAERS Safety Report 7360235-5 (Version None)
Quarter: 2011Q1

REPORT INFORMATION
  Report Type: 
  Country: None (occurrence: None)
  Receive Date: 20110307
  Receipt Date: 20110222
  Transmission Date: 20110831
  Serious: Yes (Other)
  Sender: FDA-Public Use
  Company Number: TRP_06638_2009

PATIENT
  Sex: Female

DRUGS (5)
  1. PROCRIT [Suspect]
     Indication: ANAEMIA
     Dosage: (1 DF 1X/WEEK SUBCUTANEOUS)
     Route: 058
     Dates: start: 20100418, end: 20101001
  2. NEUPOGEN [Suspect]
     Indication: WHITE BLOOD CELL COUNT DECREASED
     Dosage: 1 DF 2X/'WEEK SUBCUTANEOUS)
     Route: 058
     Dates: start: 20091123
  3. ARANESP (NOT SPECIFIED) [Suspect]
     Indication: ANAEMIA
     Dosage: (200 UG 1X/'WEEK UNKNOWN)
     Dates: start: 20101001
  4. RIBASPHERE [Suspect]
     Indication: HEPATITIS C
     Dosage: (1 DF BID ORAL), (1000 MG), (800 MG QD), (DF)
     Route: 048
     Dates: start: 20091106
  5. PEGASYS [Suspect]
     Indication: HEPATITIS C
     Dosage: (180 UG 1X/'WEEK SUBCUTANEOUS), (135 UG), (180 UG 1X/'WEEK)
     Dates: start: 20091106

REACTIONS (11)
  - PLATELET COUNT DECREASED [None]
  - NAUSEA [None]
  - WEIGHT DECREASED [None]
  - PANCYTOPENIA [None]
  - PAIN [None]
  - ANAEMIA [None]
  - WHITE BLOOD CELL COUNT DECREASED [None]
  - COUGH [None]
  - DIZZINESS [None]
  - FATIGUE [None]
  - BACK PAIN [None]
